FAERS Safety Report 8544734-6 (Version None)
Quarter: 2012Q3

REPORT INFORMATION
  Report Type: 
  Country: None (occurrence: None)
  Receive Date: 20120727
  Receipt Date: 20120626
  Transmission Date: 20120928
  Serious: Yes (Hospitalization)
  Sender: FDA-Public Use
  Company Number: ES-BRISTOL-MYERS SQUIBB COMPANY-16784274

PATIENT
  Age: 76 Year
  Sex: Male

DRUGS (5)
  1. WARFARIN SODIUM [Suspect]
     Indication: ATRIAL FIBRILLATION
     Dosage: ALDOCUMAR TABS 5 MG
     Route: 048
     Dates: start: 20070901, end: 20110930
  2. NITRODERM [Concomitant]
     Route: 062
     Dates: start: 20100701
  3. LIPLAT TABS 20 MG [Suspect]
     Indication: HYPERLIPIDAEMIA
     Dosage: LIPLAT TABS 20 MG
     Route: 048
     Dates: start: 20060101
  4. DIGOXIN [Concomitant]
     Dates: start: 20060101
  5. BISOPROLOL FUMARATE [Concomitant]
     Dosage: EMCONCOR COR 2.5 MG FILM COATED TABS
     Dates: start: 20100701

REACTIONS (1)
  - HAEMATURIA [None]
